FAERS Safety Report 12830553 (Version 1)
Quarter: 2016Q4

REPORT INFORMATION
  Report Type: Spontaneous
  Country: US (occurrence: US)
  Receive Date: 20161007
  Receipt Date: 20161007
  Transmission Date: 20170207
  Serious: No
  Sender: FDA-Public Use
  Company Number: US-SA-2016SA153698

PATIENT
  Age: 60 Year
  Sex: Female

DRUGS (15)
  1. ARIPIPRAZOLE. [Concomitant]
     Active Substance: ARIPIPRAZOLE
  2. ALPRAZOLAM. [Concomitant]
     Active Substance: ALPRAZOLAM
  3. AMPYRA [Concomitant]
     Active Substance: DALFAMPRIDINE
  4. AUBAGIO [Suspect]
     Active Substance: TERIFLUNOMIDE
     Indication: MULTIPLE SCLEROSIS
     Route: 048
  5. ESTROGENS [Concomitant]
     Active Substance: ESTROGENS
  6. VALTREX [Concomitant]
     Active Substance: VALACYCLOVIR HYDROCHLORIDE
  7. NUVIGIL [Concomitant]
     Active Substance: ARMODAFINIL
  8. LEVOTHYROXINE SODIUM. [Concomitant]
     Active Substance: LEVOTHYROXINE SODIUM
  9. XANAX [Concomitant]
     Active Substance: ALPRAZOLAM
  10. ACETAMINOPHEN W/HYDROCODONE [Concomitant]
     Active Substance: ACETAMINOPHEN\HYDROCODONE
  11. ZOLPIDEM TARTRATE. [Concomitant]
     Active Substance: ZOLPIDEM TARTRATE
     Dosage: ER
  12. ALBUTEROL. [Concomitant]
     Active Substance: ALBUTEROL
  13. PROVENTIL [Concomitant]
     Active Substance: ALBUTEROL
  14. PREMPRO [Concomitant]
     Active Substance: ESTROGENS, CONJUGATED\MEDROXYPROGESTERONE ACETATE
  15. KADIAN [Concomitant]
     Active Substance: MORPHINE SULFATE

REACTIONS (7)
  - Muscular weakness [Unknown]
  - Hypoaesthesia [Unknown]
  - Fall [Unknown]
  - Pain in extremity [Unknown]
  - Paraesthesia [Unknown]
  - Insomnia [Unknown]
  - Peripheral swelling [Unknown]
